FAERS Safety Report 11292876 (Version 2)
Quarter: 2015Q3

REPORT INFORMATION
  Report Type: Spontaneous
  Country: US (occurrence: US)
  Receive Date: 20150722
  Receipt Date: 20150911
  Transmission Date: 20151125
  Serious: Yes (Hospitalization, Other)
  Sender: FDA-Public Use
  Company Number: US-009507513-1507USA009669

PATIENT
  Sex: Female
  Weight: 95.24 kg

DRUGS (2)
  1. JANUMET [Suspect]
     Active Substance: METFORMIN HYDROCHLORIDE\SITAGLIPTIN PHOSPHATE
     Indication: TYPE 2 DIABETES MELLITUS
     Dosage: 50-500 MG, TWICE DAILY
     Route: 048
     Dates: start: 20111021, end: 20130528
  2. AVONEX [Concomitant]
     Active Substance: INTERFERON BETA-1A
     Indication: MULTIPLE SCLEROSIS
     Dosage: 30 MICROGRAM, WEEKLY
     Route: 030
     Dates: start: 2010

REACTIONS (21)
  - Pancreatitis chronic [Not Recovered/Not Resolved]
  - Depression [Unknown]
  - Metastases to liver [Unknown]
  - Hiatus hernia [Unknown]
  - Gastrooesophageal reflux disease [Unknown]
  - Fear of death [Unknown]
  - Oesophageal dilatation [Unknown]
  - Asthenia [Unknown]
  - Radiotherapy [Unknown]
  - Hepatic steatosis [Unknown]
  - Pancreatitis [Unknown]
  - Constipation [Unknown]
  - Pancreaticosplenectomy [Unknown]
  - Gingivitis [Unknown]
  - Impaired gastric emptying [Recovering/Resolving]
  - Adenocarcinoma pancreas [Unknown]
  - Hypertension [Unknown]
  - Cholelithiasis [Unknown]
  - Acquired oesophageal web [Unknown]
  - Haemorrhoids [Unknown]
  - Joint stiffness [Unknown]

NARRATIVE: CASE EVENT DATE: 201207
